FAERS Safety Report 20162847 (Version 2)
Quarter: 2021Q4

REPORT INFORMATION
  Report Type: Spontaneous
  Country: PL (occurrence: PL)
  Receive Date: 20211209
  Receipt Date: 20211224
  Transmission Date: 20220303
  Serious: Yes (Disabling, Other)
  Sender: FDA-Public Use
  Company Number: PL-SUN PHARMACEUTICAL INDUSTRIES LTD-2021R1-310029

PATIENT
  Age: 68 Year
  Sex: Female

DRUGS (11)
  1. PREGABALIN [Suspect]
     Active Substance: PREGABALIN
     Indication: Pain
     Dosage: UNK
     Route: 048
  2. ALPRAZOLAM [Interacting]
     Active Substance: ALPRAZOLAM
     Indication: Antidepressant therapy
     Dosage: 2 X 0.5 MG SR
     Route: 065
  3. ALPRAZOLAM [Interacting]
     Active Substance: ALPRAZOLAM
     Indication: Depression
  4. BROMFENAC [Suspect]
     Active Substance: BROMFENAC SODIUM
     Indication: Eye pain
     Dosage: UNK
     Route: 047
  5. CELECOXIB [Interacting]
     Active Substance: CELECOXIB
     Indication: Arthritis
     Dosage: 400 MILLIGRAM, QD
     Route: 065
  6. CIPROFLOXACIN [Interacting]
     Active Substance: CIPROFLOXACIN
     Indication: Arthritis
     Dosage: 1000 MILLIGRAM, QD
     Route: 048
  7. DULOXETINE [Interacting]
     Active Substance: DULOXETINE
     Indication: Antidepressant therapy
     Dosage: 60 MILLIGRAM, QD
     Route: 065
  8. DULOXETINE [Interacting]
     Active Substance: DULOXETINE
     Indication: Depression
  9. METOPROLOL [Interacting]
     Active Substance: METOPROLOL
     Indication: Palpitations
     Dosage: 100 MILLIGRAM
     Route: 065
  10. DEXAMETHASONE [Suspect]
     Active Substance: DEXAMETHASONE
     Indication: Eye pain
     Dosage: UNK (EYE DROPS)
     Route: 047
  11. GENTAMICIN [Suspect]
     Active Substance: GENTAMICIN
     Indication: Eye pain
     Dosage: UNK
     Route: 047

REACTIONS (13)
  - Visual impairment [Recovered/Resolved]
  - Eye pain [Recovered/Resolved]
  - Eye irritation [Recovered/Resolved]
  - Hyperhidrosis [Recovered/Resolved]
  - Drug interaction [Recovered/Resolved]
  - Contraindicated product administered [Recovered/Resolved]
  - Visual field defect [Recovered/Resolved]
  - Hallucination, visual [Recovered/Resolved]
  - Excessive eye blinking [Unknown]
  - Drug ineffective [Recovered/Resolved]
  - Dyschromatopsia [Recovered/Resolved]
  - Headache [Unknown]
  - Vitreous floaters [Recovered/Resolved]
